FAERS Safety Report 25658736 (Version 1)
Quarter: 2025Q3

REPORT INFORMATION
  Report Type: Report from Study
  Country: EU (occurrence: EU)
  Receive Date: 20250808
  Receipt Date: 20250808
  Transmission Date: 20251020
  Serious: Yes (Other)
  Sender: NOVARTIS
  Company Number: EU-002147023-NVSC2025RO116163

PATIENT
  Age: 58 Year
  Sex: Female

DRUGS (3)
  1. LEQVIO [Suspect]
     Active Substance: INCLISIRAN SODIUM
     Indication: Hypercholesterolaemia
     Dosage: 0.5 DOSAGE FORM, Q3MO
     Route: 065
     Dates: start: 20240928
  2. LEQVIO [Suspect]
     Active Substance: INCLISIRAN SODIUM
     Route: 065
     Dates: start: 20241229
  3. LEQVIO [Suspect]
     Active Substance: INCLISIRAN SODIUM
     Dosage: 284 MG, Q3MO (INJECTION IN THE BELLY)
     Route: 065
     Dates: end: 20241229

REACTIONS (5)
  - Abdominal pain upper [Recovered/Resolved]
  - Constipation [Recovered/Resolved]
  - Urine odour abnormal [Recovered/Resolved]
  - Haemorrhage [Recovered/Resolved]
  - Incorrect dose administered [Unknown]

NARRATIVE: CASE EVENT DATE: 20240928
